FAERS Safety Report 6155734-8 (Version None)
Quarter: 2009Q2

REPORT INFORMATION
  Report Type: 
  Country: None (occurrence: None)
  Receive Date: 20090415
  Receipt Date: 20090409
  Transmission Date: 20091009
  Serious: Yes (Hospitalization)
  Sender: FDA-Public Use
  Company Number: B0569818A

PATIENT
  Sex: Male

DRUGS (4)
  1. AUGMENTIN '125' [Suspect]
     Indication: TONSILLITIS
     Dosage: 2G PER DAY
     Route: 048
     Dates: start: 20090310, end: 20090316
  2. KLACID [Concomitant]
     Dosage: 720MG PER DAY
     Route: 048
     Dates: start: 20090316, end: 20090326
  3. DELTACORTENE [Concomitant]
     Route: 048
     Dates: start: 20090310, end: 20090316
  4. DELTACORTENE [Concomitant]
     Route: 048
     Dates: start: 20090316, end: 20090323

REACTIONS (3)
  - NEPHROLITHIASIS [None]
  - RASH MACULO-PAPULAR [None]
  - RENAL COLIC [None]
